FAERS Safety Report 25882862 (Version 1)
Quarter: 2025Q4

REPORT INFORMATION
  Report Type: Spontaneous
  Country: JP (occurrence: JP)
  Receive Date: 20251006
  Receipt Date: 20251006
  Transmission Date: 20260118
  Serious: Yes (Hospitalization, Other)
  Sender: AMGEN
  Company Number: JP-DSJP-DS-2025-166385-

PATIENT
  Age: 41 Year
  Sex: Female

DRUGS (2)
  1. DENOSUMAB [Suspect]
     Active Substance: DENOSUMAB
     Indication: Albright^s disease
     Dosage: 60 MG, ONCE EVERY 3 MO
     Route: 065
  2. DENOSUMAB [Suspect]
     Active Substance: DENOSUMAB
     Indication: Albright^s disease
     Dosage: 120 MG, ONCE EVERY 1 MO
     Route: 065

REACTIONS (5)
  - Hypercalcaemia [Recovering/Resolving]
  - Pathological fracture [Unknown]
  - Fall [Unknown]
  - Off label use [Unknown]
  - Off label use [Unknown]
